FAERS Safety Report 6910745-7 (Version None)
Quarter: 2010Q3

REPORT INFORMATION
  Report Type: 
  Country: None (occurrence: None)
  Receive Date: 20100806
  Receipt Date: 20100728
  Transmission Date: 20110219
  Serious: Yes (Hospitalization)
  Sender: FDA-Public Use
  Company Number: DK-PURDUE-GBR-2010-0006579

PATIENT
  Sex: Male
  Weight: 112 kg

DRUGS (5)
  1. OXYCONTIN DEPOTTABLETTER [Suspect]
     Indication: PAIN
     Dosage: 10 MG, BID
     Route: 048
     Dates: start: 20090101
  2. CIPRALEX [Suspect]
     Indication: DEPRESSION
     Dosage: 20 MG, DAILY
     Route: 048
     Dates: start: 20091221, end: 20100102
  3. MANDOLGIN [Suspect]
     Indication: PAIN
     Dosage: 100 MG, QID
     Route: 048
     Dates: start: 20090101, end: 20100126
  4. LYRICA [Suspect]
     Indication: DEPRESSION
     Dosage: 75 MG, UNK
     Route: 048
     Dates: start: 20091230, end: 20100105
  5. SEROQUEL [Suspect]
     Indication: PRODUCT USED FOR UNKNOWN INDICATION
     Dosage: 100 MG, UNK
     Route: 048
     Dates: start: 20090712, end: 20100707

REACTIONS (3)
  - GRAND MAL CONVULSION [None]
  - RHABDOMYOLYSIS [None]
  - URINARY RETENTION [None]
